FAERS Safety Report 7803256-8 (Version None)
Quarter: 2011Q4

REPORT INFORMATION
  Report Type: 
  Country: None (occurrence: None)
  Receive Date: 20111007
  Receipt Date: 20110926
  Transmission Date: 20120403
  Serious: Yes (Other)
  Sender: FDA-Public Use
  Company Number: BR-PURDUE-DEU-2011-0007870

PATIENT
  Age: 48 Year
  Sex: Male
  Weight: 82 kg

DRUGS (3)
  1. MORPHINE SULFATE [Suspect]
     Indication: EPIDURAL ANAESTHESIA
     Dosage: 2 MG, SINGLE
     Route: 008
  2. ROPIVACAINE HYDROCHLORIDE [Suspect]
     Indication: EPIDURAL ANAESTHESIA
     Dosage: 20 ML, SINGLE
  3. METFORMIN HYDROCHLORIDE [Concomitant]
     Indication: TYPE 2 DIABETES MELLITUS

REACTIONS (1)
  - EXTRADURAL HAEMATOMA [None]
